FAERS Safety Report 13960759 (Version 1)
Quarter: 2017Q3

REPORT INFORMATION
  Report Type: Spontaneous
  Country: US (occurrence: US)
  Receive Date: 20170912
  Receipt Date: 20170912
  Transmission Date: 20171128
  Serious: Yes (Other)
  Sender: FDA-Public Use
  Company Number: US-AMGEN-USASP2017135278

PATIENT
  Age: 87 Year
  Sex: Female

DRUGS (1)
  1. PROLIA [Suspect]
     Active Substance: DENOSUMAB
     Indication: OSTEOPOROSIS POSTMENOPAUSAL
     Dosage: UNK, UNK
     Route: 065
     Dates: start: 2016

REACTIONS (6)
  - Cardiac pacemaker insertion [Unknown]
  - Mental impairment [Unknown]
  - Pain in extremity [Unknown]
  - Dermatitis [Unknown]
  - Sinus disorder [Unknown]
  - Irritable bowel syndrome [Unknown]
